FAERS Safety Report 10406079 (Version 1)
Quarter: 2014Q3

REPORT INFORMATION
  Report Type: Spontaneous
  Country: US (occurrence: None)
  Receive Date: 20140821
  Receipt Date: 20140821
  Transmission Date: 20150326
  Serious: Yes (Life-Threatening, Hospitalization)
  Sender: FDA-Public Use
  Company Number: AUR-APL-2014-08813

PATIENT
  Age: 31 Year
  Sex: Female

DRUGS (2)
  1. METOPROLOL FILM-COATED TABLET [Suspect]
     Active Substance: METOPROLOL
     Indication: PRODUCT USED FOR UNKNOWN INDICATION
     Dosage: 46 TABLET OF 100 MG, 45 TABLETS OF 50 MG: 6500 MG, ORAL
     Route: 048
  2. ATENOLOL. [Suspect]
     Active Substance: ATENOLOL
     Indication: PRODUCT USED FOR UNKNOWN INDICATION
     Route: 048

REACTIONS (8)
  - Bradycardia [None]
  - Lethargy [None]
  - Intentional overdose [None]
  - Haemodialysis [None]
  - Hypophosphataemia [None]
  - Hypotension [None]
  - Somnolence [None]
  - Hypokalaemia [None]
